FAERS Safety Report 4438910-1 (Version None)
Quarter: 2004Q3

REPORT INFORMATION
  Report Type: 
  Country: None (occurrence: None)
  Receive Date: 20040831
  Receipt Date: 20040820
  Transmission Date: 20050211
  Serious: Yes (Hospitalization, Other)
  Sender: FDA-Public Use
  Company Number: KII-2004-0013131

PATIENT
  Age: 57 Year
  Sex: Female

DRUGS (4)
  1. MORPHINE SULFATE [Suspect]
     Dosage: ORAL
     Route: 048
  2. TRICYCLIC ANTIDEPESSANTS () [Suspect]
     Dosage: ORAL
     Route: 048
  3. OTHER TYPE OF GASTROINTESTINAL PREPARATION() [Suspect]
  4. ANTI-ASTHMATICS () [Suspect]

REACTIONS (14)
  - ABNORMAL CHEST SOUND [None]
  - BODY TEMPERATURE INCREASED [None]
  - COMA [None]
  - FAECAL OCCULT BLOOD POSITIVE [None]
  - GASTRIC FLUID ANALYSIS ABNORMAL [None]
  - GASTROINTESTINAL HAEMORRHAGE [None]
  - HAEMATOCRIT DECREASED [None]
  - HAEMOGLOBIN DECREASED [None]
  - HYPOTENSION [None]
  - OCCULT BLOOD POSITIVE [None]
  - PNEUMONIA [None]
  - SEPSIS [None]
  - SINUS TACHYCARDIA [None]
  - URINE OUTPUT DECREASED [None]
